FAERS Safety Report 14727804 (Version 2)
Quarter: 2018Q2

REPORT INFORMATION
  Report Type: Other
  Country: FR (occurrence: FR)
  Receive Date: 20180406
  Receipt Date: 20180422
  Transmission Date: 20180711
  Serious: Yes (Hospitalization, Other)
  Sender: FDA-Public Use
  Company Number: FR-APOTEX-2018AP009708

PATIENT
  Age: 19 Year
  Sex: Male

DRUGS (5)
  1. IMOVANE [Suspect]
     Active Substance: ZOPICLONE
     Indication: POISONING DELIBERATE
     Dosage: 14 DF, UNK, IN TOTAL
     Route: 048
     Dates: start: 20180228, end: 20180228
  2. QUITAXON [Suspect]
     Active Substance: DOXEPIN HYDROCHLORIDE
     Indication: POISONING DELIBERATE
     Dosage: 10 DF, UNK, IN TOTAL
     Route: 048
     Dates: start: 20180228, end: 20180228
  3. TEMESTA                            /00273201/ [Suspect]
     Active Substance: LORAZEPAM
     Indication: POISONING DELIBERATE
     Dosage: 26 DF, UNK, IN TOTAL
     Route: 048
     Dates: start: 20180228, end: 20180228
  4. PAROXETINE TABLET [Suspect]
     Active Substance: PAROXETINE
     Dosage: 14 DF, UNK
     Route: 048
     Dates: start: 20180228, end: 20180228
  5. PROPRANOLOL [Suspect]
     Active Substance: PROPRANOLOL HYDROCHLORIDE
     Indication: POISONING DELIBERATE
     Dosage: 14 DF, UNK
     Route: 048
     Dates: start: 20180228, end: 20180228

REACTIONS (2)
  - Pneumonia aspiration [Recovering/Resolving]
  - Coma [Recovered/Resolved]

NARRATIVE: CASE EVENT DATE: 20180228
